FAERS Safety Report 5011073-X (Version None)
Quarter: 2006Q2

REPORT INFORMATION
  Report Type: 
  Country: None (occurrence: None)
  Receive Date: 20060523
  Receipt Date: 20060503
  Transmission Date: 20061013
  Serious: Yes (Life-Threatening, Hospitalization)
  Sender: FDA-Public Use
  Company Number: 2006US000915

PATIENT
  Age: 52 Year
  Sex: Female

DRUGS (1)
  1. ADENOCARD [Suspect]
     Indication: SUPRAVENTRICULAR TACHYCARDIA
     Dosage: 12 MG, TOTAL DOSE, IV BOLUS
     Route: 040

REACTIONS (4)
  - ACUTE PULMONARY OEDEMA [None]
  - DIASTOLIC DYSFUNCTION [None]
  - SINUS TACHYCARDIA [None]
  - TACHYARRHYTHMIA [None]
